FAERS Safety Report 9431903 (Version 1)
Quarter: 2013Q3

REPORT INFORMATION
  Report Type: Spontaneous
  Country: JP (occurrence: JP)
  Receive Date: 20130731
  Receipt Date: 20130731
  Transmission Date: 20140515
  Serious: Yes (Other)
  Sender: FDA-Public Use
  Company Number: PHHY2013JP081243

PATIENT
  Sex: Male

DRUGS (4)
  1. DIOVAN [Suspect]
     Dosage: 80 MG, DAILY
     Route: 048
  2. AMLODIPINE [Concomitant]
     Dosage: 5 MG, DAILY
     Route: 048
  3. REBAMIPIDE [Concomitant]
     Dosage: 100 MG,  DAILY
     Route: 048
  4. URINORM [Concomitant]
     Dosage: 50 MG,  DAILY
     Route: 048

REACTIONS (1)
  - Loss of consciousness [Unknown]
